FAERS Safety Report 6113181-9 (Version None)
Quarter: 2009Q1

REPORT INFORMATION
  Report Type: 
  Country: None (occurrence: None)
  Receive Date: 20090312
  Receipt Date: 20090302
  Transmission Date: 20090719
  Serious: Yes (Other)
  Sender: FDA-Public Use
  Company Number: US-PFIZER INC-2009151314

PATIENT
  Sex: Female
  Weight: 88.889 kg

DRUGS (14)
  1. CLINDAMYCIN HCL [Suspect]
  2. ERYTHROMYCIN [Suspect]
  3. CODEINE [Suspect]
  4. AUGMENTIN [Suspect]
  5. ACETYLSALICYLIC ACID [Suspect]
  6. ALL OTHER THERAPEUTIC PRODUCTS [Suspect]
  7. IBUPROFEN [Concomitant]
     Dosage: UNK
  8. MELATONIN [Concomitant]
     Dosage: UNK
  9. NEURONTIN [Concomitant]
     Dosage: UNK
     Dates: end: 20081001
  10. MESTINON [Concomitant]
     Dosage: UNK
  11. ALBUTEROL [Concomitant]
     Dosage: UNK
  12. MIDRIN [Concomitant]
     Dosage: UNK
  13. ADVAIR HFA [Concomitant]
     Dosage: UNK
  14. CELLCEPT [Concomitant]

REACTIONS (7)
  - DYSPNOEA [None]
  - HEADACHE [None]
  - HYPERSENSITIVITY [None]
  - MENINGITIS ASEPTIC [None]
  - MYASTHENIA GRAVIS [None]
  - PAIN [None]
  - RASH [None]
